FAERS Safety Report 5153852-4 (Version None)
Quarter: 2006Q4

REPORT INFORMATION
  Report Type: 
  Country: None (occurrence: None)
  Receive Date: 20061120
  Receipt Date: 20061107
  Transmission Date: 20070319
  Serious: Yes (Hospitalization)
  Sender: FDA-Public Use
  Company Number: PHNR2006AU01526

PATIENT
  Age: 37 Year
  Sex: Female

DRUGS (6)
  1. CLOZARIL [Suspect]
     Indication: SCHIZOPHRENIA
     Dosage: 25-450MG DAILY
     Route: 048
     Dates: start: 19971119, end: 20020703
  2. CLOZARIL [Suspect]
     Dosage: 12.5 - 350MG DAILY
     Route: 048
     Dates: start: 20030207
  3. CLOZARIL [Suspect]
     Dosage: 2.5 G, ONCE/SINGLE
     Route: 048
     Dates: start: 20061105, end: 20061105
  4. BENZTROPINE MESYLATE [Concomitant]
     Route: 048
  5. METFORMIN [Concomitant]
     Route: 048
  6. GLICLAZIDE [Concomitant]
     Route: 048

REACTIONS (4)
  - ANTIPSYCHOTIC DRUG LEVEL INCREASED [None]
  - ELECTROCARDIOGRAM QT PROLONGED [None]
  - MULTIPLE DRUG OVERDOSE INTENTIONAL [None]
  - TACHYCARDIA [None]
